FAERS Safety Report 7440554-4 (Version None)
Quarter: 2011Q2

REPORT INFORMATION
  Report Type: 
  Country: None (occurrence: None)
  Receive Date: 20110427
  Receipt Date: 20110420
  Transmission Date: 20111010
  Serious: Yes (Death)
  Sender: FDA-Public Use
  Company Number: A0922565A

PATIENT
  Sex: Male

DRUGS (1)
  1. TYKERB [Suspect]
     Indication: ANAL CANCER
     Dosage: 1250MG PER DAY
     Route: 065

REACTIONS (2)
  - OFF LABEL USE [None]
  - DEATH [None]
